FAERS Safety Report 11447788 (Version 1)
Quarter: 2015Q3

REPORT INFORMATION
  Report Type: Spontaneous
  Country: US (occurrence: US)
  Receive Date: 20150831
  Receipt Date: 20150831
  Transmission Date: 20151125
  Serious: No
  Sender: FDA-Public Use
  Company Number: US-ELI_LILLY_AND_COMPANY-US200904002492

PATIENT
  Age: 83 Year
  Sex: Female

DRUGS (8)
  1. VITAMIN D [Concomitant]
     Active Substance: CHOLECALCIFEROL
     Dosage: 1000 MG, UNK
  2. AMIODARONE [Concomitant]
     Active Substance: AMIODARONE
  3. PROCRIT [Concomitant]
     Active Substance: ERYTHROPOIETIN
  4. ASA [Concomitant]
     Active Substance: ASPIRIN
     Dosage: 325 MG, UNK
  5. CYMBALTA [Suspect]
     Active Substance: DULOXETINE HYDROCHLORIDE
     Indication: DEPRESSION
     Dosage: 30 MG, UNK
  6. TOPROL XL [Concomitant]
     Active Substance: METOPROLOL SUCCINATE
  7. VITAMINS [Concomitant]
     Active Substance: VITAMINS
  8. CALCIUM [Concomitant]
     Active Substance: CALCIUM

REACTIONS (1)
  - Medication error [Unknown]
